FAERS Safety Report 4325522-3 (Version None)
Quarter: 2004Q1

REPORT INFORMATION
  Report Type: 
  Country: None (occurrence: None)
  Receive Date: 20040324
  Receipt Date: 20040308
  Transmission Date: 20041129
  Serious: Yes (Hospitalization, Other)
  Sender: FDA-Public Use
  Company Number: USA040361320

PATIENT
  Age: 83 Year
  Sex: Female

DRUGS (3)
  1. EVISTA [Suspect]
     Indication: OSTEOPOROSIS
     Dosage: 60 MG DAY
     Dates: start: 20030301
  2. PREVACID [Concomitant]
  3. ASPIRIN [Concomitant]

REACTIONS (5)
  - BACK INJURY [None]
  - BACK PAIN [None]
  - FALL [None]
  - HYPERTRICHOSIS [None]
  - LOSS OF CONSCIOUSNESS [None]
